FAERS Safety Report 4528889-6 (Version None)
Quarter: 2004Q4

REPORT INFORMATION
  Report Type: 
  Country: None (occurrence: None)
  Receive Date: 20041214
  Receipt Date: 20041202
  Transmission Date: 20050328
  Serious: Yes (Hospitalization)
  Sender: FDA-Public Use
  Company Number: HQWYE762806DEC04

PATIENT
  Age: 17 Year
  Sex: Female

DRUGS (16)
  1. TAZOBAC (PIPERACILLIN/TAZOBACTAM INJECTION) [Suspect]
     Indication: PSEUDOMONAS INFECTION
     Dosage: 4.5 G 3X PER 1 DAY
     Route: 042
     Dates: start: 20041022, end: 20041115
  2. IBUPROFEN [Suspect]
     Indication: PAIN
     Dosage: 400 MG 3X PER 1 DAY
     Route: 048
  3. GARAMYCIN [Suspect]
     Indication: PSEUDOMONAS INFECTION
     Dosage: 30 MG 2X PER 1 DAY
     Route: 041
     Dates: start: 20041022
  4. NEXIUM [Suspect]
     Dosage: 40 MG DAILY
  5. TIZANIDINE HCL [Suspect]
     Dosage: 3 MG DAILY
     Route: 048
     Dates: end: 20041112
  6. TRAMADOL HCL [Suspect]
     Indication: PAIN
     Dosage: 50 MG  4X PER 1 DAY
     Dates: end: 20041112
  7. ZOLOFT [Suspect]
     Indication: DEPRESSION
     Dosage: 50 MG
     Route: 048
  8. NEURONTIN [Concomitant]
  9. CLONAZEPAM [Concomitant]
  10. MORPHINE SULFATE [Concomitant]
  11. ACETAMINOPHEN [Concomitant]
  12. BACTRIM [Suspect]
  13. FRAXIPARIN (HEPARIN-FRACTION, CALCIUM SALT) [Concomitant]
  14. BENERVA (THIAMINE HYDROCHLORIDE) [Concomitant]
  15. BECOZYME FORTE (BIOTIN/CALCIUM PANTOTHENATE/CYANOCOBALAMIN/NICOTINAMID [Concomitant]
  16. LORAZEPAM [Concomitant]

REACTIONS (1)
  - SEROTONIN SYNDROME [None]
